FAERS Safety Report 6623254-X (Version None)
Quarter: 2010Q1

REPORT INFORMATION
  Report Type: 
  Country: None (occurrence: None)
  Receive Date: 20100310
  Receipt Date: 20091123
  Transmission Date: 20100710
  Serious: No
  Sender: FDA-Public Use
  Company Number: US-BIOGENIDEC-2009BI038220

PATIENT
  Age: 50 Year
  Sex: Female

DRUGS (2)
  1. AVONEX [Suspect]
     Indication: MULTIPLE SCLEROSIS
     Route: 030
     Dates: start: 20090401
  2. TOPAMAX [Concomitant]
     Indication: MIGRAINE

REACTIONS (4)
  - CHEST PAIN [None]
  - HYPOAESTHESIA [None]
  - MIGRAINE [None]
  - STRESS [None]
